FAERS Safety Report 16748100 (Version 1)
Quarter: 2019Q3

REPORT INFORMATION
  Report Type: Report from Study
  Country: IT (occurrence: IT)
  Receive Date: 20190827
  Receipt Date: 20190827
  Transmission Date: 20191005
  Serious: Yes (Other)
  Sender: FDA-Public Use
  Company Number: IT-GILEAD-2019-0425237

PATIENT
  Age: 51 Year
  Sex: Male

DRUGS (1)
  1. EMTRICITABINE/RILPIVIRINE/TENOFOVIR ALAFENAMIDE [Suspect]
     Active Substance: EMTRICITABINE\RILPIVIRINE HYDROCHLORIDE\TENOFOVIR ALAFENAMIDE FUMARATE
     Indication: ACQUIRED IMMUNODEFICIENCY SYNDROME
     Dosage: 1 DOSAGE FORM, QD
     Route: 048
     Dates: start: 20171115, end: 20180925

REACTIONS (1)
  - Abdominal distension [Recovered/Resolved]

NARRATIVE: CASE EVENT DATE: 20180124
